FAERS Safety Report 8859001 (Version 1)
Quarter: 2012Q4

REPORT INFORMATION
  Report Type: 
  Country: JP (occurrence: JP)
  Receive Date: 20121024
  Receipt Date: 20121024
  Transmission Date: 20130627
  Serious: Yes (Hospitalization)
  Sender: FDA-Public Use
  Company Number: PHHY2012JP094626

PATIENT
  Age: 8 Year
  Sex: Female
  Weight: 27 kg

DRUGS (2)
  1. TEGRETOL [Suspect]
     Indication: EPILEPSY
     Dosage: 60 mg, BID
     Route: 048
     Dates: start: 20120731, end: 20120817
  2. TEGRETOL [Suspect]
     Indication: EPILEPSY
     Dosage: 100 mg, BID
     Route: 048
     Dates: start: 20120818, end: 20120829

REACTIONS (7)
  - Encephalopathy [Recovered/Resolved]
  - Convulsion [Recovered/Resolved]
  - Altered state of consciousness [Recovered/Resolved]
  - Hepatic function abnormal [Recovered/Resolved]
  - Lymphadenopathy [Recovered/Resolved]
  - Pyrexia [Recovered/Resolved]
  - Lymphocyte stimulation test positive [Unknown]
